FAERS Safety Report 24961782 (Version 2)
Quarter: 2025Q3

REPORT INFORMATION
  Report Type: Spontaneous
  Country: US (occurrence: US)
  Receive Date: 20250212
  Receipt Date: 20250717
  Transmission Date: 20251021
  Serious: No
  Sender: LUNDBECK
  Company Number: US-LUNDBECK-DKLU4010465

PATIENT
  Age: 68 Year
  Sex: Female
  Weight: 92.986 kg

DRUGS (1)
  1. VYEPTI [Suspect]
     Active Substance: EPTINEZUMAB-JJMR
     Indication: Product used for unknown indication
     Dosage: 100 MILLIGRAM
     Route: 041

REACTIONS (4)
  - Alopecia [Unknown]
  - Fatigue [Unknown]
  - Hypersomnia [Unknown]
  - Abdominal pain upper [Unknown]
